FAERS Safety Report 9037726 (Version 2)
Quarter: 2013Q1

REPORT INFORMATION
  Report Type: Other
  Country: US (occurrence: US)
  Receive Date: 20130129
  Receipt Date: 20130325
  Transmission Date: 20140127
  Serious: Yes (Death)
  Sender: FDA-Public Use
  Company Number: US-SHIRE-ALL1-2013-00449

PATIENT
  Age: 61 None
  Sex: Male

DRUGS (1)
  1. FOSRENOL [Suspect]
     Indication: PRODUCT USED FOR UNKNOWN INDICATION
     Dosage: 1000 MG (SEVEN 1000 MG PER DAY), OTHER
     Route: 048
     Dates: start: 200804

REACTIONS (2)
  - Death [Fatal]
  - Prescribed overdose [Not Recovered/Not Resolved]
